FAERS Safety Report 15257917 (Version 1)
Quarter: 2018Q3

REPORT INFORMATION
  Report Type: Spontaneous
  Country: FR (occurrence: FR)
  Receive Date: 20180808
  Receipt Date: 20180808
  Transmission Date: 20181010
  Serious: Yes (Other)
  Sender: FDA-Public Use
  Company Number: FR-ABBVIE-18K-056-2446521-00

PATIENT
  Age: 38 Year
  Sex: Male
  Weight: 77 kg

DRUGS (1)
  1. HUMIRA [Suspect]
     Active Substance: ADALIMUMAB
     Indication: PSORIATIC ARTHROPATHY
     Route: 058
     Dates: start: 2012

REACTIONS (2)
  - Presbyopia [Not Recovered/Not Resolved]
  - Presbyacusis [Not Recovered/Not Resolved]

NARRATIVE: CASE EVENT DATE: 201709
